FAERS Safety Report 9195951 (Version 1)
Quarter: 2013Q1

REPORT INFORMATION
  Report Type: Report from Study
  Country: DE (occurrence: DE)
  Receive Date: 20130328
  Receipt Date: 20130328
  Transmission Date: 20140127
  Serious: Yes (Hospitalization)
  Sender: FDA-Public Use
  Company Number: DE-JNJFOC-20091204314

PATIENT
  Age: 35 Year
  Sex: Female
  Weight: 74 kg

DRUGS (10)
  1. REMICADE [Suspect]
     Indication: CROHN^S DISEASE
     Route: 042
     Dates: start: 20051128
  2. REMICADE [Suspect]
     Indication: CROHN^S DISEASE
     Route: 042
     Dates: start: 20051216
  3. REMICADE [Suspect]
     Indication: CROHN^S DISEASE
     Route: 042
     Dates: start: 20060116
  4. REMICADE [Suspect]
     Indication: CROHN^S DISEASE
     Route: 042
     Dates: start: 20060313
  5. PREDNISOLONE [Concomitant]
     Indication: CROHN^S DISEASE
     Dates: start: 20091025
  6. PREDNISOLONE [Concomitant]
     Indication: CROHN^S DISEASE
     Dates: start: 20091006, end: 20091014
  7. MTX [Concomitant]
     Indication: CROHN^S DISEASE
     Dates: start: 20091015
  8. PANTOPRAZOLE [Concomitant]
     Indication: PROPHYLAXIS
     Dates: start: 20091109
  9. OTHER THERAPEUTIC PRODUCT UNSPECIFIED [Concomitant]
     Indication: PROPHYLAXIS
     Dates: start: 20091013
  10. AZATHIOPRINE [Concomitant]
     Indication: CROHN^S DISEASE
     Dates: start: 20091006

REACTIONS (3)
  - Small intestinal resection [Recovered/Resolved]
  - Haematoma [Recovered/Resolved]
  - Crohn^s disease [Recovered/Resolved]
